FAERS Safety Report 5884070-X (Version None)
Quarter: 2008Q3

REPORT INFORMATION
  Report Type: 
  Country: None (occurrence: None)
  Receive Date: 20080911
  Receipt Date: 20080905
  Transmission Date: 20090109
  Serious: Yes (Hospitalization)
  Sender: FDA-Public Use
  Company Number: TPG2008A01264

PATIENT
  Age: 59 Year
  Sex: Male

DRUGS (1)
  1. ACTOS [Suspect]
     Indication: DRUG USE FOR UNKNOWN INDICATION
     Dosage: PER ORAL
     Route: 048
     Dates: start: 20080613, end: 20080620

REACTIONS (2)
  - DYSPNOEA [None]
  - PULMONARY OEDEMA [None]
